FAERS Safety Report 15213599 (Version 3)
Quarter: 2018Q3

REPORT INFORMATION
  Report Type: Spontaneous
  Country: AT (occurrence: AT)
  Receive Date: 20180730
  Receipt Date: 20180920
  Transmission Date: 20181010
  Serious: Yes (Other)
  Sender: FDA-Public Use
  Company Number: AT-BEH-2018093092

PATIENT
  Age: 14 Month
  Sex: Male
  Weight: 10 kg

DRUGS (1)
  1. AFSTYLA ANTIHEMOPHILIC FACTOR (RECOMBINANT), SINGLE CHAIN [Suspect]
     Active Substance: ANTIHEMOPHILIC FACTOR, HUMAN RECOMBINANT
     Indication: FACTOR VIII DEFICIENCY
     Dosage: 500 IU, BIW
     Route: 042
     Dates: start: 2018

REACTIONS (7)
  - Urticaria [Unknown]
  - Feeling hot [Unknown]
  - Pruritus [Unknown]
  - Temperature intolerance [Unknown]
  - Hypersensitivity [Unknown]
  - Pyrexia [Unknown]
  - Spontaneous haemorrhage [Unknown]
